FAERS Safety Report 5931454-7 (Version None)
Quarter: 2008Q4

REPORT INFORMATION
  Report Type: 
  Country: None (occurrence: None)
  Receive Date: 20081027
  Receipt Date: 20081015
  Transmission Date: 20090506
  Serious: Yes (Other)
  Sender: FDA-Public Use
  Company Number: BE-BRISTOL-MYERS SQUIBB COMPANY-14362909

PATIENT
  Age: 57 Year
  Sex: Female

DRUGS (4)
  1. SPRYCEL [Suspect]
     Indication: CHRONIC MYELOID LEUKAEMIA
     Route: 048
     Dates: start: 20071221
  2. MAXSOTEN [Concomitant]
     Dates: start: 20050101
  3. CYCLOCUR [Concomitant]
     Dates: start: 20050101
  4. TRAMADOL HCL [Concomitant]
     Dates: start: 20071217

REACTIONS (1)
  - PROTEIN-LOSING GASTROENTEROPATHY [None]
